FAERS Safety Report 5123707-X (Version None)
Quarter: 2006Q3

REPORT INFORMATION
  Report Type: 
  Country: None (occurrence: None)
  Receive Date: 20060811
  Receipt Date: 20060511
  Transmission Date: 20061208
  Serious: No
  Sender: FDA-Public Use
  Company Number: S06-USA-01868-01

PATIENT
  Age: 81 Year
  Sex: Male

DRUGS (4)
  1. NAMENDA [Suspect]
     Indication: DEMENTIA ALZHEIMER'S TYPE
     Dosage: 5 MG QD PO
     Route: 048
     Dates: start: 20060511
  2. LEVOTHYROXINE [Concomitant]
  3. FELODIPINE [Concomitant]
  4. HYDROCHLOROTHIAZIDE [Concomitant]

REACTIONS (3)
  - DIZZINESS [None]
  - NAUSEA [None]
  - VISION BLURRED [None]
